FAERS Safety Report 15119243 (Version 1)
Quarter: 2018Q3

REPORT INFORMATION
  Report Type: Report from Study
  Country: CO (occurrence: CO)
  Receive Date: 20180709
  Receipt Date: 20180709
  Transmission Date: 20181010
  Serious: Yes (Hospitalization, Other)
  Sender: FDA-Public Use
  Company Number: CO-UCBSA-2018029108

PATIENT
  Age: 21 Year
  Sex: Male
  Weight: 70 kg

DRUGS (3)
  1. LACOSAMIDE. [Suspect]
     Active Substance: LACOSAMIDE
     Indication: EPILEPSY
     Dosage: 200 MG, 3X/DAY (TID)
     Route: 048
     Dates: start: 20130620
  2. LEVETIRACETAM. [Concomitant]
     Active Substance: LEVETIRACETAM
     Indication: EPILEPSY
     Dosage: UNK
  3. CLOBAZAM [Concomitant]
     Active Substance: CLOBAZAM
     Indication: EPILEPSY

REACTIONS (3)
  - Seizure [Recovered/Resolved]
  - Off label use [Unknown]
  - Overdose [Unknown]

NARRATIVE: CASE EVENT DATE: 20130620
